FAERS Safety Report 4980230-0 (Version None)
Quarter: 2006Q2

REPORT INFORMATION
  Report Type: 
  Country: None (occurrence: None)
  Receive Date: 20060424
  Receipt Date: 20060320
  Transmission Date: 20061013
  Serious: Yes (Other)
  Sender: FDA-Public Use
  Company Number: PHBS2006DE04486

PATIENT
  Age: 59 Year
  Sex: Male

DRUGS (1)
  1. ZOLEDRONATE [Suspect]
     Indication: PLASMACYTOMA
     Route: 065

REACTIONS (6)
  - ALVEOLOPLASTY [None]
  - BONE TRIMMING [None]
  - DENTAL TREATMENT [None]
  - OSTEONECROSIS [None]
  - PATHOLOGICAL FRACTURE [None]
  - PRIMARY SEQUESTRUM [None]
